FAERS Safety Report 4916321-X (Version None)
Quarter: 2006Q1

REPORT INFORMATION
  Report Type: 
  Country: None (occurrence: None)
  Receive Date: 20060217
  Receipt Date: 20060208
  Transmission Date: 20060701
  Serious: Yes (Other)
  Sender: FDA-Public Use
  Company Number: CN-MERCK-0602CHN00004

PATIENT
  Age: 60 Year
  Sex: Male

DRUGS (4)
  1. PROSCAR [Suspect]
     Indication: BENIGN PROSTATIC HYPERPLASIA
     Route: 048
     Dates: start: 20051001, end: 20050101
  2. NITRENDIPINE [Concomitant]
     Indication: HYPERTENSION
     Route: 048
     Dates: start: 20051001, end: 20051101
  3. NITRENDIPINE [Concomitant]
     Route: 048
     Dates: start: 20051001, end: 20051101
  4. RESERPINE [Concomitant]
     Indication: HYPERTENSION
     Route: 048
     Dates: start: 20051101

REACTIONS (2)
  - ORCHITIS [None]
  - VITILIGO [None]
